FAERS Safety Report 22100307 (Version 1)
Quarter: 2023Q1

REPORT INFORMATION
  Report Type: Spontaneous
  Country: US (occurrence: US)
  Receive Date: 20230315
  Receipt Date: 20230315
  Transmission Date: 20230417
  Serious: Yes (Hospitalization)
  Sender: FDA-Public Use
  Company Number: US-PRINSTON PHARMACEUTICAL INC.-2023PRN00094

PATIENT
  Age: 25 Year
  Sex: Female

DRUGS (1)
  1. METOPROLOL SUCCINATE [Suspect]
     Active Substance: METOPROLOL SUCCINATE
     Indication: Atrial fibrillation

REACTIONS (2)
  - Stevens-Johnson syndrome [Recovered/Resolved]
  - Kounis syndrome [Recovered/Resolved]
